FAERS Safety Report 6606425-8 (Version None)
Quarter: 2010Q1

REPORT INFORMATION
  Report Type: 
  Country: None (occurrence: None)
  Receive Date: 20100226
  Receipt Date: 20090202
  Transmission Date: 20100710
  Serious: Yes (Hospitalization)
  Sender: FDA-Public Use
  Company Number: DE-SANOFI-AVENTIS-F01200801160

PATIENT
  Age: 68 Year
  Sex: Male

DRUGS (2)
  1. LEUPRORELIN ACETATE [Suspect]
     Indication: PROSTATE CANCER
     Route: 058
     Dates: start: 20080422, end: 20080422
  2. BICALUTAMIDE [Suspect]
     Route: 048
     Dates: start: 20060727, end: 20071120

REACTIONS (3)
  - LYMPHOEDEMA [None]
  - RENAL FAILURE [None]
  - URINARY TRACT OBSTRUCTION [None]
